FAERS Safety Report 24771169 (Version 1)
Quarter: 2024Q4

REPORT INFORMATION
  Report Type: Spontaneous
  Country: US (occurrence: None)
  Receive Date: 20241224
  Receipt Date: 20241224
  Transmission Date: 20250115
  Serious: Yes (Death)
  Sender: Public
  Company Number: None

PATIENT
  Sex: Male

DRUGS (9)
  1. PAZOPANIB [Suspect]
     Active Substance: PAZOPANIB
     Indication: Malignant connective tissue neoplasm
     Dosage: FREQ: TAKE 4 TABLETS BY MOUTH EVERY DAY
     Route: 048
     Dates: start: 20241127
  2. PAZOPANIB [Suspect]
     Active Substance: PAZOPANIB
     Indication: Soft tissue sarcoma
  3. BUTALBUTAL/ACETAMINOPHEN [Concomitant]
  4. DEXAMETHASONE [Concomitant]
     Active Substance: DEXAMETHASONE
  5. EVEROLIMUS [Concomitant]
     Active Substance: EVEROLIMUS
  6. FAMOTIDINE [Concomitant]
     Active Substance: FAMOTIDINE
  7. HYCROXYZ HCL [Concomitant]
  8. LORAZEPAM [Concomitant]
     Active Substance: LORAZEPAM
  9. PANTOPRAZOLE [Concomitant]
     Active Substance: PANTOPRAZOLE

REACTIONS (1)
  - Death [None]
